FAERS Safety Report 9683483 (Version 1)
Quarter: 2013Q4

REPORT INFORMATION
  Report Type: Spontaneous
  Country: US (occurrence: US)
  Receive Date: 20131112
  Receipt Date: 20131112
  Transmission Date: 20140711
  Serious: No
  Sender: FDA-Public Use
  Company Number: US-009507513-1311USA003990

PATIENT
  Age: 67 Year
  Sex: Female
  Weight: 68.27 kg

DRUGS (1)
  1. CLARITIN REDITABS [Suspect]
     Indication: HYPERSENSITIVITY
     Dosage: 10 MG, ONCE
     Dates: start: 20130910

REACTIONS (2)
  - Expired drug administered [Unknown]
  - Product blister packaging issue [Unknown]
